FAERS Safety Report 18703226 (Version 2)
Quarter: 2021Q1

REPORT INFORMATION
  Report Type: Spontaneous
  Country: AU (occurrence: AU)
  Receive Date: 20210105
  Receipt Date: 20210112
  Transmission Date: 20210419
  Serious: Yes (Hospitalization, Other)
  Sender: FDA-Public Use
  Company Number: AU-MYLANLABS-2020M1107053

PATIENT
  Sex: Male

DRUGS (69)
  1. ARIPIPRAZOLE. [Suspect]
     Active Substance: ARIPIPRAZOLE
     Dosage: 20 MILLIGRAM, PM
     Route: 048
     Dates: start: 20200713
  2. ARIPIPRAZOLE. [Suspect]
     Active Substance: ARIPIPRAZOLE
     Dosage: 20 MILLIGRAM, PM
     Route: 048
     Dates: start: 20171010
  3. PALIPERIDONE ER [Concomitant]
     Active Substance: PALIPERIDONE
     Dosage: 150 MILLIGRAM
     Dates: start: 20200909
  4. RISPERIDONE. [Concomitant]
     Active Substance: RISPERIDONE
     Dosage: 6 MILLIGRAM, PM
     Route: 048
     Dates: start: 20200110
  5. THIAMINE. [Concomitant]
     Active Substance: THIAMINE
     Dosage: 100 MILLIGRAM, TID
     Route: 048
     Dates: start: 20200909
  6. LITHIUM CARBONATE. [Concomitant]
     Active Substance: LITHIUM CARBONATE
     Dosage: 250 MILLIGRAM, BID
     Route: 048
     Dates: start: 20200110
  7. OLANZAPINE. [Concomitant]
     Active Substance: OLANZAPINE
     Dosage: 20 MILLIGRAM, PM
     Dates: start: 20150817
  8. OLANZAPINE. [Concomitant]
     Active Substance: OLANZAPINE
     Dosage: 20 MILLIGRAM, PM
     Dates: start: 20121102
  9. MIRTAZAPINE. [Concomitant]
     Active Substance: MIRTAZAPINE
     Dosage: 30 MILLIGRAM, PM
     Dates: start: 201404, end: 201502
  10. ARIPIPRAZOLE. [Suspect]
     Active Substance: ARIPIPRAZOLE
     Dosage: 20 MILLIGRAM, PM
     Route: 048
     Dates: start: 20201117
  11. PALIPERIDONE ER [Concomitant]
     Active Substance: PALIPERIDONE
     Dosage: 150 MILLIGRAM, 4XW
     Dates: start: 20201117
  12. VENLAFAXINE [Concomitant]
     Active Substance: VENLAFAXINE HYDROCHLORIDE
     Dosage: 225 MILLIGRAM, AM
     Route: 048
     Dates: start: 20201117
  13. VENLAFAXINE [Concomitant]
     Active Substance: VENLAFAXINE HYDROCHLORIDE
     Dosage: 225 MILLIGRAM
     Dates: start: 201607, end: 201710
  14. BENZATROPINE [Concomitant]
     Active Substance: BENZTROPINE
     Indication: TREMOR
     Dosage: 2 MILLIGRAM, AM
     Route: 048
     Dates: start: 20201117
  15. DIAZEPAM. [Concomitant]
     Active Substance: DIAZEPAM
     Dosage: 10 MILLIGRAM, PRN
     Dates: start: 20160310
  16. CLOZARIL [Suspect]
     Active Substance: CLOZAPINE
     Dosage: 200 MILLIGRAM
     Dates: start: 201509, end: 201602
  17. LITHIUM. [Concomitant]
     Active Substance: LITHIUM
     Dosage: 250 MILLIGRAM, BID
     Dates: start: 20171020
  18. VENLAFAXINE [Concomitant]
     Active Substance: VENLAFAXINE HYDROCHLORIDE
     Dosage: 225 MILLIGRAM, AM
     Route: 048
     Dates: start: 20171020
  19. VENLAFAXINE [Concomitant]
     Active Substance: VENLAFAXINE HYDROCHLORIDE
     Dosage: 150 MILLIGRAM, AM
     Dates: start: 20160210
  20. RISPERIDONE. [Concomitant]
     Active Substance: RISPERIDONE
     Dosage: 6 MILLIGRAM
  21. RISPERIDONE. [Concomitant]
     Active Substance: RISPERIDONE
     Dosage: CHANGED FROM NOCTE
     Dates: start: 20200713
  22. PROMETHAZINE [Concomitant]
     Active Substance: PROMETHAZINE HYDROCHLORIDE
     Indication: CONSTIPATION
     Dosage: 25 MILLIGRAM, PM
     Route: 048
     Dates: start: 20200909
  23. PROMETHAZINE [Concomitant]
     Active Substance: PROMETHAZINE HYDROCHLORIDE
     Dosage: 25 MILLIGRAM, PM
     Route: 048
     Dates: start: 20200713
  24. THIAMINE. [Concomitant]
     Active Substance: THIAMINE
     Dosage: 100 MILLIGRAM, AM
     Dates: start: 20201117
  25. THIAMINE. [Concomitant]
     Active Substance: THIAMINE
     Dosage: 100 MILLIGRAM, TID
     Route: 048
     Dates: start: 20200110
  26. BREO ELLIPTA [Concomitant]
     Active Substance: FLUTICASONE FUROATE\VILANTEROL TRIFENATATE
     Dosage: UNK
  27. OLANZAPINE. [Concomitant]
     Active Substance: OLANZAPINE
     Dosage: 10 MILLIGRAM, PM
  28. PALIPERIDONE ER [Concomitant]
     Active Substance: PALIPERIDONE
     Dosage: 6 MILLIGRAM, QD
     Dates: start: 201212
  29. LITHIUM. [Concomitant]
     Active Substance: LITHIUM
     Dosage: 500 MG IR DAILY TO 450 MG MR DAILY
  30. VENLAFAXINE [Concomitant]
     Active Substance: VENLAFAXINE HYDROCHLORIDE
     Dosage: 150 MG INCREASING TO 225 MG
     Dates: start: 2016
  31. VENLAFAXINE [Concomitant]
     Active Substance: VENLAFAXINE HYDROCHLORIDE
     Dosage: 225 MILLIGRAM
  32. VENLAFAXINE [Concomitant]
     Active Substance: VENLAFAXINE HYDROCHLORIDE
     Dosage: 150 MILLIGRAM, PM
     Dates: start: 20160105
  33. BENZATROPINE [Concomitant]
     Active Substance: BENZTROPINE
     Dosage: 2 MILLIGRAM, PM
     Dates: start: 20171020
  34. CLOZARIL [Suspect]
     Active Substance: CLOZAPINE
     Indication: SCHIZOPHRENIA
     Dosage: UNK
     Route: 048
     Dates: start: 20150901
  35. LITHIUM. [Concomitant]
     Active Substance: LITHIUM
     Dosage: 450 MILLIGRAM, AM
     Dates: start: 20200909
  36. VENLAFAXINE [Concomitant]
     Active Substance: VENLAFAXINE HYDROCHLORIDE
     Dosage: 150 MILLIGRAM, AM
     Dates: start: 20160310
  37. PROMETHAZINE [Concomitant]
     Active Substance: PROMETHAZINE HYDROCHLORIDE
     Indication: DRY MOUTH
     Dosage: UNK
     Dates: end: 201102
  38. PROMETHAZINE [Concomitant]
     Active Substance: PROMETHAZINE HYDROCHLORIDE
     Dosage: 25 MILLIGRAM, PM
     Route: 048
     Dates: start: 20200110
  39. FLUPENTHIXOL                       /00109701/ [Concomitant]
     Active Substance: FLUPENTIXOL
     Dosage: 100 MILLIGRAM, BIWEEKLY
     Dates: start: 201404, end: 201502
  40. CLOZARIL [Suspect]
     Active Substance: CLOZAPINE
     Dosage: 400 MILLIGRAM, PM
     Dates: start: 20160210
  41. ARIPIPRAZOLE. [Suspect]
     Active Substance: ARIPIPRAZOLE
     Indication: PRODUCT USED FOR UNKNOWN INDICATION
     Dosage: 30 MILLIGRAM, AM
  42. VENLAFAXINE [Concomitant]
     Active Substance: VENLAFAXINE HYDROCHLORIDE
     Dosage: 225 MILLIGRAM, AM
     Route: 048
     Dates: start: 20200713
  43. VENLAFAXINE [Concomitant]
     Active Substance: VENLAFAXINE HYDROCHLORIDE
     Dosage: 150 MILLIGRAM, AM
     Dates: start: 201509, end: 201602
  44. VENLAFAXINE [Concomitant]
     Active Substance: VENLAFAXINE HYDROCHLORIDE
     Dosage: 150 MILLIGRAM, PM
     Dates: start: 20150817
  45. BENZATROPINE [Concomitant]
     Active Substance: BENZTROPINE
     Dosage: 2 MILLIGRAM, PM
     Route: 048
     Dates: start: 20200909
  46. SALBUTAMOL [Concomitant]
     Active Substance: ALBUTEROL
     Indication: DYSPNOEA
     Dosage: UNK
  47. CLOZARIL [Suspect]
     Active Substance: CLOZAPINE
     Dosage: 200 MILLIGRAM
     Dates: start: 201607, end: 201709
  48. CLOZARIL [Suspect]
     Active Substance: CLOZAPINE
     Dosage: UNK
     Dates: start: 2017, end: 20171020
  49. CLOZARIL [Suspect]
     Active Substance: CLOZAPINE
     Dosage: 300 MILLIGRAM, PM
     Dates: start: 201606
  50. CLOZARIL [Suspect]
     Active Substance: CLOZAPINE
     Dosage: 200 MILLIGRAM, BID
     Dates: start: 20160105
  51. PALIPERIDONE ER [Concomitant]
     Active Substance: PALIPERIDONE
     Dosage: 150 MILLIGRAM, 4XW
     Dates: start: 201301, end: 201404
  52. LITHIUM. [Concomitant]
     Active Substance: LITHIUM
     Dosage: 450 MILLIGRAM, BID
     Dates: start: 20201117
  53. VENLAFAXINE [Concomitant]
     Active Substance: VENLAFAXINE HYDROCHLORIDE
     Dosage: 225 MILLIGRAM, AM
     Route: 048
     Dates: start: 20200110
  54. BENZATROPINE [Concomitant]
     Active Substance: BENZTROPINE
     Dosage: UNK
     Dates: start: 2017
  55. BENZATROPINE [Concomitant]
     Active Substance: BENZTROPINE
     Dosage: 2 MILLIGRAM, PM
     Route: 048
     Dates: start: 20200713
  56. LITHIUM CARBONATE. [Concomitant]
     Active Substance: LITHIUM CARBONATE
     Dosage: 250 MILLIGRAM, BID
     Route: 048
     Dates: start: 20200713
  57. SALBUTAMOL [Concomitant]
     Active Substance: ALBUTEROL
     Indication: ASTHMA
  58. CLOZARIL [Suspect]
     Active Substance: CLOZAPINE
     Dosage: 200 MILLIGRAM, BID
     Dates: start: 20200310
  59. ARIPIPRAZOLE. [Suspect]
     Active Substance: ARIPIPRAZOLE
     Dosage: 20 MILLIGRAM, PM
     Route: 048
     Dates: start: 20200909
  60. ARIPIPRAZOLE. [Suspect]
     Active Substance: ARIPIPRAZOLE
     Dosage: 20 MILLIGRAM, PM
     Route: 048
     Dates: start: 20200110
  61. ARIPIPRAZOLE. [Suspect]
     Active Substance: ARIPIPRAZOLE
     Dosage: 10 MG?20MG OD
     Dates: start: 201607, end: 201710
  62. VENLAFAXINE [Concomitant]
     Active Substance: VENLAFAXINE HYDROCHLORIDE
     Dosage: 225 MILLIGRAM, AM
     Route: 048
     Dates: start: 20200909
  63. BENZATROPINE [Concomitant]
     Active Substance: BENZTROPINE
     Dosage: 2 MILLIGRAM, PM
     Route: 048
     Dates: start: 20200110
  64. RISPERIDONE. [Concomitant]
     Active Substance: RISPERIDONE
     Dosage: 6 MILLIGRAM, PM
     Dates: start: 20171020
  65. THIAMINE. [Concomitant]
     Active Substance: THIAMINE
     Dosage: 100 MILLIGRAM, TID
     Route: 048
     Dates: start: 20200713
  66. SYMBICORT [Concomitant]
     Active Substance: BUDESONIDE\FORMOTEROL FUMARATE DIHYDRATE
     Indication: ASTHMA
     Dosage: UNK, BID
  67. OLANZAPINE. [Concomitant]
     Active Substance: OLANZAPINE
     Dosage: 10 MILLIGRAM, PM
     Dates: start: 201509, end: 201602
  68. DIAZEPAM. [Concomitant]
     Active Substance: DIAZEPAM
     Dosage: 10 MILLIGRAM, PRN
     Dates: start: 20160210
  69. ZUCLOPENTHIXOL DECANOATE [Concomitant]
     Active Substance: ZUCLOPENTHIXOL DECANOATE
     Dosage: 100 MILLIGRAM, Q2W
     Dates: start: 20150817

REACTIONS (9)
  - Delusion [Unknown]
  - Psychotic disorder [Unknown]
  - Dermatitis atopic [Unknown]
  - Impaired self-care [Unknown]
  - Herpes simplex [Unknown]
  - Neutropenia [Unknown]
  - Acarodermatitis [Unknown]
  - Hallucination, auditory [Unknown]
  - Behaviour disorder [Unknown]
